FAERS Safety Report 15855288 (Version 1)
Quarter: 2019Q1

REPORT INFORMATION
  Report Type: Spontaneous
  Country: JP (occurrence: JP)
  Receive Date: 20190122
  Receipt Date: 20190122
  Transmission Date: 20190417
  Serious: Yes (Other)
  Sender: FDA-Public Use
  Company Number: JP-PFIZER INC-2019020012

PATIENT

DRUGS (2)
  1. GABAPEN [Suspect]
     Active Substance: GABAPENTIN
     Dosage: UNK
  2. ALEVIATIN [PHENYTOIN] [Suspect]
     Active Substance: PHENYTOIN
     Dosage: UNK

REACTIONS (2)
  - Altered state of consciousness [Unknown]
  - Hallucination, auditory [Unknown]
